FAERS Safety Report 5955201-8 (Version None)
Quarter: 2008Q4

REPORT INFORMATION
  Report Type: 
  Country: None (occurrence: None)
  Receive Date: 20081112
  Receipt Date: 20081028
  Transmission Date: 20090506
  Serious: Yes (Other)
  Sender: FDA-Public Use
  Company Number: 2008GB0253

PATIENT
  Age: 1 Year
  Sex: Female
  Weight: 12.05 kg

DRUGS (1)
  1. ORFADIN [Suspect]
     Indication: TYROSINAEMIA
     Dosage: 12 MG, ORAL
     Route: 048
     Dates: start: 20061116

REACTIONS (2)
  - ALPHA 1 FOETOPROTEIN INCREASED [None]
  - HEPATIC CYST [None]
